FAERS Safety Report 13621282 (Version 2)
Quarter: 2017Q3

REPORT INFORMATION
  Report Type: Spontaneous
  Country: US (occurrence: US)
  Receive Date: 20170607
  Receipt Date: 20170727
  Transmission Date: 20171127
  Serious: No
  Sender: FDA-Public Use
  Company Number: US-PFIZER INC-2017246312

PATIENT
  Sex: Female

DRUGS (1)
  1. XELJANZ XR [Suspect]
     Active Substance: TOFACITINIB CITRATE
     Dosage: 11 MG, DAILY

REACTIONS (9)
  - Hypoaesthesia [Unknown]
  - Myalgia [Unknown]
  - Lasegue^s test positive [Unknown]
  - Pain in extremity [Unknown]
  - Paraesthesia [Unknown]
  - Joint range of motion decreased [Unknown]
  - Back pain [Unknown]
  - Musculoskeletal stiffness [Unknown]
  - Arthralgia [Unknown]
